FAERS Safety Report 14332960 (Version 1)
Quarter: 2017Q4

REPORT INFORMATION
  Report Type: Spontaneous
  Country: CH (occurrence: CH)
  Receive Date: 20171228
  Receipt Date: 20171228
  Transmission Date: 20180321
  Serious: Yes (Death, Life-Threatening, Other)
  Sender: FDA-Public Use
  Company Number: CH-BAYER-2017-245120

PATIENT
  Age: 78 Year
  Sex: Male

DRUGS (3)
  1. ACETYLSALICYLIC ACID({=100 MG) [Suspect]
     Active Substance: ASPIRIN
     Dosage: 200 MG, UNK
  2. CLOPIDOGREL [Suspect]
     Active Substance: CLOPIDOGREL BISULFATE
  3. RIVAROXABAN [Suspect]
     Active Substance: RIVAROXABAN
     Indication: ATRIAL FIBRILLATION
     Dosage: 20 MG, QD

REACTIONS (9)
  - Subdural haematoma [Fatal]
  - Gastrointestinal haemorrhage [Not Recovered/Not Resolved]
  - Subarachnoid haematoma [Fatal]
  - Cerebral haemorrhage [Fatal]
  - Haematuria [Not Recovered/Not Resolved]
  - Labelled drug-drug interaction medication error [None]
  - Pneumonia [Fatal]
  - Syncope [None]
  - Drug administration error [None]
